FAERS Safety Report 7376681-X (Version None)
Quarter: 2011Q1

REPORT INFORMATION
  Report Type: 
  Country: None (occurrence: None)
  Receive Date: 20110317
  Receipt Date: 20110302
  Transmission Date: 20110831
  Serious: Yes (Hospitalization)
  Sender: FDA-Public Use
  Company Number: FK201100352

PATIENT
  Age: 74 Year
  Sex: Female

DRUGS (2)
  1. DEPO-MEDROL [Suspect]
     Indication: ARTHRALGIA
     Dosage: 40 MG
  2. XYLOCAINE [Suspect]
     Indication: PAIN
     Dosage: INTRA-ARTICULAR
     Route: 014

REACTIONS (2)
  - INJECTION SITE INFECTION [None]
  - SEPTIC ARTHRITIS STREPTOCOCCAL [None]
